FAERS Safety Report 4482514-1 (Version None)
Quarter: 2004Q4

REPORT INFORMATION
  Report Type: 
  Country: None (occurrence: None)
  Receive Date: 20041022
  Receipt Date: 20041014
  Transmission Date: 20050328
  Serious: Yes (Death, Hospitalization)
  Sender: FDA-Public Use
  Company Number: AU-BRISTOL-MYERS SQUIBB COMPANY-12739058

PATIENT
  Age: 74 Year
  Sex: Female

DRUGS (10)
  1. METHOTREXATE [Suspect]
     Indication: RHEUMATOID ARTHRITIS
     Dosage: 10-20 MG/WEEK
  2. LEFLUNOMIDE [Suspect]
     Indication: RHEUMATOID ARTHRITIS
  3. HYDROXYCHLOROQUINE SULFATE [Suspect]
  4. SULFASALAZINE [Suspect]
  5. PREDNISOLONE [Concomitant]
  6. METHYLPREDNISOLONE [Concomitant]
  7. OMEPRAZOLE [Concomitant]
  8. DILTIAZEM HCL [Concomitant]
  9. METOPROLOL [Concomitant]
  10. PAROXETINE [Concomitant]

REACTIONS (2)
  - DEATH [None]
  - PANCYTOPENIA [None]
